FAERS Safety Report 4345257-0 (Version None)
Quarter: 2004Q2

REPORT INFORMATION
  Report Type: 
  Country: None (occurrence: None)
  Receive Date: 20040422
  Receipt Date: 20040422
  Transmission Date: 20050107
  Serious: Yes (Other)
  Sender: FDA-Public Use
  Company Number: None

PATIENT
  Age: 61 Year
  Sex: Male
  Weight: 91 kg

DRUGS (2)
  1. AMBIEN [Suspect]
     Dosage: 5 MG Q HS
     Dates: start: 20040407
  2. ATIVAN [Suspect]
     Dosage: 1 MG QD PRN  IV
     Route: 042
     Dates: start: 20040416, end: 20040422

REACTIONS (1)
  - CONFUSIONAL STATE [None]
